FAERS Safety Report 5753702-9 (Version None)
Quarter: 2008Q2

REPORT INFORMATION
  Report Type: 
  Country: None (occurrence: None)
  Receive Date: 20080530
  Receipt Date: 20080526
  Transmission Date: 20081010
  Serious: Yes (Other)
  Sender: FDA-Public Use
  Company Number: NL-ASTRAZENECA-2008AC01337

PATIENT
  Age: 38 Year
  Sex: Male

DRUGS (3)
  1. SEROQUEL [Suspect]
     Dosage: 200MG SEROQULE XR WITH 100MG SEROQUEL
     Route: 048
     Dates: start: 20080402, end: 20080410
  2. LITHIUM CARBONATE [Concomitant]
  3. NORTILEN [Concomitant]

REACTIONS (2)
  - DYSPHAGIA [None]
  - LARYNGOSPASM [None]
